FAERS Safety Report 7501069-8 (Version None)
Quarter: 2011Q2

REPORT INFORMATION
  Report Type: 
  Country: None (occurrence: None)
  Receive Date: 20110524
  Receipt Date: 20100610
  Transmission Date: 20111010
  Serious: No
  Sender: FDA-Public Use
  Company Number: US-NOVEN-ALL1-2010-03324

PATIENT

DRUGS (4)
  1. RISPERDAL [Concomitant]
     Dosage: .5 MG, 1X/DAY:QD (EACH MORNING)
     Route: 048
     Dates: start: 20070101
  2. DAYTRANA [Suspect]
     Dosage: 15 MG, 1X/DAY:QD
     Route: 062
     Dates: start: 20090101, end: 20090101
  3. RISPERDAL [Concomitant]
     Dosage: 1 MG, 1X/DAY:QD (EACH NIGHT)
     Route: 048
     Dates: start: 20070101
  4. DAYTRANA [Suspect]
     Dosage: 20 MG, 1X/DAY:QD
     Route: 062
     Dates: start: 20090101

REACTIONS (4)
  - PRODUCT QUALITY ISSUE [None]
  - NO ADVERSE EVENT [None]
  - DRUG ADMINISTERED AT INAPPROPRIATE SITE [None]
  - WRONG TECHNIQUE IN DRUG USAGE PROCESS [None]
